FAERS Safety Report 13093652 (Version 2)
Quarter: 2017Q1

REPORT INFORMATION
  Report Type: Spontaneous
  Country: US (occurrence: US)
  Receive Date: 20170106
  Receipt Date: 20170215
  Transmission Date: 20170428
  Serious: Yes (Death, Hospitalization)
  Sender: FDA-Public Use
  Company Number: US-PFIZER INC-2017003814

PATIENT
  Sex: Female

DRUGS (1)
  1. LYRICA [Suspect]
     Active Substance: PREGABALIN
     Dosage: UNK

REACTIONS (4)
  - Lower limb fracture [Fatal]
  - Cardiac disorder [Fatal]
  - Fall [Fatal]
  - Upper limb fracture [Fatal]

NARRATIVE: CASE EVENT DATE: 20161212
